FAERS Safety Report 26109695 (Version 1)
Quarter: 2025Q4

REPORT INFORMATION
  Report Type: Spontaneous
  Country: UA (occurrence: UA)
  Receive Date: 20251201
  Receipt Date: 20251201
  Transmission Date: 20260118
  Serious: Yes (Death)
  Sender: MYLAN
  Company Number: UA-MYLANLABS-2025M1101103

PATIENT
  Age: 33 Year
  Sex: Female

DRUGS (3)
  1. PRETOMANID [Suspect]
     Active Substance: PRETOMANID
     Indication: Tuberculosis
     Dosage: 0.2 GRAM, QD
     Dates: start: 20251016, end: 20251027
  2. BEDAQUILINE [Suspect]
     Active Substance: BEDAQUILINE
     Indication: Tuberculosis
     Dosage: 0.4 GRAM, QD
     Dates: start: 20251016, end: 20251027
  3. MOXIFLOXACIN [Suspect]
     Active Substance: MOXIFLOXACIN
     Indication: Tuberculosis
     Dosage: 0.4 GRAM, QD
     Dates: start: 20251016, end: 20251027

REACTIONS (1)
  - Death [Fatal]

NARRATIVE: CASE EVENT DATE: 20251027
